FAERS Safety Report 8589692-3 (Version None)
Quarter: 2012Q3

REPORT INFORMATION
  Report Type: 
  Country: None (occurrence: None)
  Receive Date: 20120813
  Receipt Date: 20120802
  Transmission Date: 20120928
  Serious: Yes (Hospitalization)
  Sender: FDA-Public Use
  Company Number: DK-ROCHE-1093494

PATIENT
  Sex: Female
  Weight: 66 kg

DRUGS (2)
  1. IBANDRONATE SODIUM [Concomitant]
     Indication: METASTASES TO BONE
     Dates: start: 20050629, end: 20120604
  2. XELODA [Suspect]
     Indication: BREAST CANCER
     Dosage: TWICE A DAY IN 14 DAYS EVERY THIRD WEEK
     Dates: start: 20080624, end: 20120328

REACTIONS (1)
  - BLADDER TRANSITIONAL CELL CARCINOMA [None]
